FAERS Safety Report 11777680 (Version 2)
Quarter: 2020Q3

REPORT INFORMATION
  Report Type: Spontaneous
  Country: JP (occurrence: JP)
  Receive Date: 20151125
  Receipt Date: 20200901
  Transmission Date: 20201102
  Serious: Yes (Hospitalization, Other)
  Sender: FDA-Public Use
  Company Number: JP-TEVA-611531ISR

PATIENT
  Sex: Female

DRUGS (16)
  1. DOCETAXEL. [Suspect]
     Active Substance: DOCETAXEL
     Indication: ENDOMETRIAL STROMAL SARCOMA
     Dosage: 60 MG/M2 ON DAY 8 EVERY 3 MONTHS
     Route: 065
  2. GEMCITABINE. [Suspect]
     Active Substance: GEMCITABINE
     Indication: ENDOMETRIAL STROMAL SARCOMA
     Dosage: 800 MG/M2 ON DAYS 1 AND 8 EVERY 3 MONTHS
     Route: 065
  3. PACLITAXEL. [Suspect]
     Active Substance: PACLITAXEL
     Indication: ENDOMETRIAL STROMAL SARCOMA
     Dosage: 170 MG/M2
     Route: 065
  4. IFOSFAMIDE. [Suspect]
     Active Substance: IFOSFAMIDE
     Dosage: 3 CYCLES OF IFOSFAMIDE 2G FOR 4 DAYS
     Route: 065
  5. DOXORUBICIN [Suspect]
     Active Substance: DOXORUBICIN
     Dosage: 30MG FOR 3 DAYS.
     Route: 065
  6. ERIBULIN [Suspect]
     Active Substance: ERIBULIN
     Route: 065
  7. CISPLATIN. [Suspect]
     Active Substance: CISPLATIN
     Route: 065
  8. PACLITAXEL. [Suspect]
     Active Substance: PACLITAXEL
     Dosage: 7 CYCLES OF PACLITAXEL 140 MG/M2
     Route: 065
  9. DEXAMETHASONE. [Suspect]
     Active Substance: DEXAMETHASONE
     Route: 065
  10. GEMCITABINE. [Suspect]
     Active Substance: GEMCITABINE
     Indication: ENDOMETRIAL STROMAL SARCOMA
     Dosage: 800 MG/M2 ON DAYS 1 AND 8 EVERY 3 WEEKS
     Route: 065
  11. LEUPRORELIN [Suspect]
     Active Substance: LEUPROLIDE ACETATE
     Indication: ENDOMETRIAL STROMAL SARCOMA
     Route: 065
  12. ANASTROZOLE. [Concomitant]
     Active Substance: ANASTROZOLE
     Indication: ENDOMETRIAL STROMAL SARCOMA
     Dosage: 1 MG/DAY
     Route: 065
  13. DOCETAXEL. [Suspect]
     Active Substance: DOCETAXEL
     Indication: ENDOMETRIAL STROMAL SARCOMA
     Dosage: 60 MG/M2 ON DAY 8 EVERY 3 WEEKS
     Route: 065
  14. CARBOPLATIN. [Suspect]
     Active Substance: CARBOPLATIN
     Indication: ENDOMETRIAL STROMAL SARCOMA
     Dosage: TARGET AUC 4
     Route: 065
  15. MEDROXYPROGESTERONE [Suspect]
     Active Substance: MEDROXYPROGESTERONE
     Indication: ENDOMETRIAL STROMAL SARCOMA
     Dosage: 600 MG/DAY
     Route: 065
  16. IRINOTECAN [Suspect]
     Active Substance: IRINOTECAN
     Dosage: 70MG, ADMINISTERED EVERY 3 MONTHS
     Route: 065

REACTIONS (17)
  - Fatigue [Unknown]
  - Dehydration [Unknown]
  - Neutropenia [Unknown]
  - Diarrhoea [Unknown]
  - Condition aggravated [Recovering/Resolving]
  - Drug hypersensitivity [Unknown]
  - Thoracic haemorrhage [Recovered/Resolved]
  - Shock [Unknown]
  - Decreased appetite [Unknown]
  - Myelosuppression [Unknown]
  - Vena cava thrombosis [Unknown]
  - Pleural effusion [Recovering/Resolving]
  - Alopecia [Unknown]
  - Hypoaesthesia [Unknown]
  - Ascites [Recovering/Resolving]
  - Dyspnoea [Unknown]
  - Drug ineffective [Unknown]
